FAERS Safety Report 6433231-X (Version None)
Quarter: 2009Q4

REPORT INFORMATION
  Report Type: 
  Country: None (occurrence: None)
  Receive Date: 20091109
  Receipt Date: 20091028
  Transmission Date: 20100525
  Serious: Yes (Hospitalization, Other)
  Sender: FDA-Public Use
  Company Number: US-PFIZER INC-2009272379

PATIENT
  Age: 81 Year
  Sex: Female

DRUGS (5)
  1. SUTENT [Suspect]
     Indication: RENAL CANCER
     Dosage: 50 MG, EVERY OTHER DAY
  2. HEPARIN SODIUM [Suspect]
     Dosage: UNK
     Dates: start: 20090917, end: 20090924
  3. NORVASC [Concomitant]
     Dosage: 5 MG, 1X/DAY
     Dates: start: 20090918
  4. WARFARIN [Concomitant]
     Dosage: 5 MG, 1X/DAY
     Dates: start: 20090918
  5. TYLENOL [Concomitant]
     Dosage: 650 MG, AS NEEDED
     Dates: start: 20090918

REACTIONS (3)
  - ACTIVATED PARTIAL THROMBOPLASTIN TIME PROLONGED [None]
  - CEREBROVASCULAR ACCIDENT [None]
  - HAEMOGLOBIN DECREASED [None]
